FAERS Safety Report 17869270 (Version 1)
Quarter: 2020Q3

REPORT INFORMATION
  Report Type: Spontaneous
  Country: US (occurrence: US)
  Receive Date: 20200608
  Receipt Date: 20200608
  Transmission Date: 20201105
  Serious: Yes (Other)
  Sender: FDA-Public Use
  Company Number: US-CIPLA LTD.-2020US03787

PATIENT

DRUGS (2)
  1. EPIRUBICIN [Suspect]
     Active Substance: EPIRUBICIN
     Indication: DEDIFFERENTIATED LIPOSARCOMA
     Dosage: UNK
  2. CATEQUENTINIB. [Suspect]
     Active Substance: CATEQUENTINIB
     Indication: DEDIFFERENTIATED LIPOSARCOMA
     Dosage: UNK

REACTIONS (3)
  - Nausea [Unknown]
  - Toxicity to various agents [Unknown]
  - Vomiting [Unknown]
